FAERS Safety Report 6858427-4 (Version None)
Quarter: 2010Q3

REPORT INFORMATION
  Report Type: 
  Country: None (occurrence: None)
  Receive Date: 20100719
  Receipt Date: 20080519
  Transmission Date: 20110219
  Serious: Yes (Other)
  Sender: FDA-Public Use
  Company Number: US-PFIZER INC-2008013327

PATIENT
  Sex: Female
  Weight: 79.8 kg

DRUGS (6)
  1. CHANTIX [Suspect]
     Indication: SMOKING CESSATION THERAPY
     Route: 048
     Dates: start: 20070101
  2. CLONAZEPAM [Concomitant]
  3. PREMARIN [Concomitant]
     Indication: CERVIX CARCINOMA
  4. PREMARIN [Concomitant]
     Indication: UTERINE CANCER
  5. NEXIUM [Concomitant]
  6. PROZAC [Concomitant]
     Dates: end: 20070101

REACTIONS (6)
  - CRYING [None]
  - DEPRESSION [None]
  - DRUG ADMINISTRATION ERROR [None]
  - DRUG INEFFECTIVE [None]
  - HEADACHE [None]
  - NERVOUSNESS [None]
